FAERS Safety Report 8241411-6 (Version None)
Quarter: 2012Q1

REPORT INFORMATION
  Report Type: 
  Country: None (occurrence: None)
  Receive Date: 20120328
  Receipt Date: 20120321
  Transmission Date: 20120608
  Serious: Yes (Death)
  Sender: FDA-Public Use
  Company Number: GB-ALEXION-A201001198

PATIENT

DRUGS (17)
  1. ACETAMINOPHEN AND CODEINE PHOSPHATE [Concomitant]
     Dosage: UNK
  2. HYDROXYZINE [Concomitant]
     Dosage: 10 MG TID AND 25 MG QHS
  3. DIAZEPAM [Concomitant]
     Dosage: 2 MG, QHS
  4. MYCOPHENOLATE MOFETIL [Concomitant]
     Dosage: 1 G, BID
  5. FOLIC ACID [Concomitant]
     Dosage: 5 MG, QD
  6. GLICLAZIDE [Concomitant]
     Dosage: 160 MG, BID
  7. METFORMIN HCL [Concomitant]
     Dosage: 1 G, BID
  8. LANSOPRAZOLE [Concomitant]
     Dosage: 30 MG, QD
  9. LACTULOSE [Concomitant]
     Dosage: UNK
  10. SOLIRIS [Suspect]
     Indication: PAROXYSMAL NOCTURNAL HAEMOGLOBINURIA
     Dosage: UNK
     Route: 042
     Dates: start: 20100907
  11. CALCIUM CARBONATE W/COLECALCIFEROL [Concomitant]
     Dosage: 1
  12. MOVICOL                            /01053601/ [Concomitant]
     Dosage: UNK
  13. ALENDRONIC ACID [Concomitant]
     Dosage: 70 MG, QW
  14. PENICILLIN V [Concomitant]
     Dosage: 500 MG, BID
  15. KENALOG [Concomitant]
     Dosage: 80 MG, Q8WKS
  16. NOVOMIX                            /01475801/ [Concomitant]
  17. PREDNISOLONE [Concomitant]
     Dosage: 20 MG, QD

REACTIONS (4)
  - MYELODYSPLASTIC SYNDROME [None]
  - SEPSIS [None]
  - CONDITION AGGRAVATED [None]
  - MULTI-ORGAN FAILURE [None]
